FAERS Safety Report 24763769 (Version 1)
Quarter: 2024Q4

REPORT INFORMATION
  Report Type: Report from Study
  Country: US (occurrence: US)
  Receive Date: 20241223
  Receipt Date: 20241223
  Transmission Date: 20250115
  Serious: Yes (Hospitalization)
  Sender: ABBVIE
  Company Number: US-ABBVIE-6054413

PATIENT
  Age: 19 Year
  Sex: Female

DRUGS (1)
  1. HUMIRA [Suspect]
     Active Substance: ADALIMUMAB
     Indication: Colitis ulcerative
     Dosage: DOSAGE: 80 MG/ML
     Route: 058
     Dates: start: 20210414

REACTIONS (8)
  - Asthenia [Unknown]
  - Abdominal pain upper [Unknown]
  - Vomiting [Unknown]
  - Nausea [Unknown]
  - Pain [Recovering/Resolving]
  - Abdominal pain upper [Recovering/Resolving]
  - Migraine [Recovering/Resolving]
  - Vision blurred [Recovering/Resolving]

NARRATIVE: CASE EVENT DATE: 20241101
